FAERS Safety Report 7422584-1 (Version None)
Quarter: 2011Q2

REPORT INFORMATION
  Report Type: 
  Country: None (occurrence: None)
  Receive Date: 20110419
  Receipt Date: 20110412
  Transmission Date: 20111010
  Serious: Yes (Life-Threatening, Hospitalization, Disabling)
  Sender: FDA-Public Use
  Company Number: CA-JNJFOC-20110106677

PATIENT
  Sex: Male

DRUGS (9)
  1. CITALOPRAM HYDROBROMIDE [Concomitant]
     Indication: PRODUCT USED FOR UNKNOWN INDICATION
     Route: 048
  2. INVEGA [Suspect]
     Route: 048
  3. PROPRANOLOL [Concomitant]
     Indication: PRODUCT USED FOR UNKNOWN INDICATION
     Route: 065
  4. TRIAMTERENE W/HYDOCHLOROTHIAZIDE [Concomitant]
     Indication: PRODUCT USED FOR UNKNOWN INDICATION
     Route: 065
  5. INVEGA [Suspect]
     Indication: SCHIZOPHRENIA
     Route: 048
  6. CITALOPRAM HYDROBROMIDE [Concomitant]
     Route: 048
  7. COGENTIN [Concomitant]
     Route: 065
  8. FLUPENTIXOL DECANOATE [Concomitant]
     Indication: PRODUCT USED FOR UNKNOWN INDICATION
     Route: 030
  9. VITAMIN B-12 [Concomitant]
     Indication: PRODUCT USED FOR UNKNOWN INDICATION
     Dosage: STARTED MANY YEARS AGO
     Route: 065

REACTIONS (6)
  - STEVENS-JOHNSON SYNDROME [None]
  - RASH GENERALISED [None]
  - DYSPNOEA [None]
  - HYPONATRAEMIA [None]
  - HAEMOGLOBIN DECREASED [None]
  - CELLULITIS [None]
